FAERS Safety Report 16995756 (Version 2)
Quarter: 2019Q4

REPORT INFORMATION
  Report Type: Spontaneous
  Country: US (occurrence: US)
  Receive Date: 20191105
  Receipt Date: 20191118
  Transmission Date: 20200122
  Serious: Yes (Other)
  Sender: FDA-Public Use
  Company Number: US-BAYER-2019-027782

PATIENT
  Age: 29 Year
  Sex: Female

DRUGS (12)
  1. ESSURE [Suspect]
     Active Substance: DEVICE
     Indication: FEMALE STERILISATION
     Dosage: UNK
     Dates: start: 20160617, end: 20190117
  2. ACETAMINOPHEN. [Concomitant]
     Active Substance: ACETAMINOPHEN
     Dosage: UNK
     Dates: start: 201607
  3. MIRENA [Suspect]
     Active Substance: LEVONORGESTREL
     Indication: MENSTRUAL CYCLE MANAGEMENT
  4. PAXIL [Concomitant]
     Active Substance: PAROXETINE HYDROCHLORIDE
  5. FLUOXETINE [Concomitant]
     Active Substance: FLUOXETINE HYDROCHLORIDE
  6. PREDNISONE. [Concomitant]
     Active Substance: PREDNISONE
  7. MIRENA [Suspect]
     Active Substance: LEVONORGESTREL
     Indication: MENSTRUAL CYCLE MANAGEMENT
     Dosage: 20 MCG/24HR, CONT
     Route: 015
     Dates: start: 20160617, end: 20190117
  8. LORATADINE. [Concomitant]
     Active Substance: LORATADINE
  9. LEVOTHYROXINE. [Concomitant]
     Active Substance: LEVOTHYROXINE
     Dosage: UNK
     Dates: start: 20150825, end: 20190131
  10. WELLBUTRIN [Concomitant]
     Active Substance: BUPROPION HYDROCHLORIDE
  11. VITAMIN D [VITAMIN D NOS] [Concomitant]
     Active Substance: VITAMIN D NOS
  12. CYCLOBENZAPRINE. [Concomitant]
     Active Substance: CYCLOBENZAPRINE

REACTIONS (20)
  - Abdominal pain [Recovered/Resolved]
  - Dysmenorrhoea [Unknown]
  - Migraine [Recovered/Resolved]
  - Nausea [Unknown]
  - Device ineffective [Unknown]
  - Anxiety [Unknown]
  - Device dislocation [Unknown]
  - Depression [Unknown]
  - Urinary tract disorder [Recovered/Resolved]
  - Weight increased [Recovered/Resolved]
  - Vaginal haemorrhage [Unknown]
  - Menorrhagia [Unknown]
  - Dyspareunia [Unknown]
  - Pelvic pain [Recovered/Resolved]
  - Abortion spontaneous [Unknown]
  - Urinary tract infection [Unknown]
  - Fatigue [Unknown]
  - Pregnancy with contraceptive device [Unknown]
  - Genital haemorrhage [Recovered/Resolved]
  - Headache [Recovered/Resolved]

NARRATIVE: CASE EVENT DATE: 20160617
